FAERS Safety Report 18207060 (Version 1)
Quarter: 2020Q3

REPORT INFORMATION
  Report Type: Spontaneous
  Country: US (occurrence: US)
  Receive Date: 20200828
  Receipt Date: 20200828
  Transmission Date: 20201103
  Serious: Yes (Other)
  Sender: FDA-Public Use
  Company Number: US-PFIZER INC-2020326649

PATIENT
  Age: 49 Year
  Sex: Female
  Weight: 53.07 kg

DRUGS (2)
  1. GENOTROPIN [Suspect]
     Active Substance: SOMATROPIN
     Indication: BRAIN INJURY
     Dosage: 0.4 MG, 1X/DAY (INJECTION AT NIGHT, ROTATING TO THIGHS, BUTT CHEEKS, AND BOTH ARMS)
     Dates: start: 202005
  2. GENOTROPIN [Suspect]
     Active Substance: SOMATROPIN
     Indication: MUSCLE DISORDER

REACTIONS (2)
  - Headache [Not Recovered/Not Resolved]
  - Brain oedema [Unknown]

NARRATIVE: CASE EVENT DATE: 202005
